FAERS Safety Report 6612257-7 (Version None)
Quarter: 2010Q1

REPORT INFORMATION
  Report Type: 
  Country: None (occurrence: None)
  Receive Date: 20100223
  Receipt Date: 20100201
  Transmission Date: 20100710
  Serious: No
  Sender: FDA-Public Use
  Company Number: 2010-00215

PATIENT
  Age: 57 Year
  Sex: Male
  Weight: 80.7403 kg

DRUGS (3)
  1. ZICAM COLD REMEDY PLUS LIQUI-LOZ [Suspect]
     Dosage: EVERY 2-3 HRS - 3 DAYS
     Dates: start: 20100121, end: 20100124
  2. NATUREMADE MENS' HEALTH MULTIVITAMIN [Concomitant]
  3. FISH OIL [Concomitant]

REACTIONS (1)
  - AGEUSIA [None]
